FAERS Safety Report 8201780-X (Version None)
Quarter: 2012Q1

REPORT INFORMATION
  Report Type: 
  Country: None (occurrence: None)
  Receive Date: 20120312
  Receipt Date: 20120308
  Transmission Date: 20120608
  Serious: Yes (Other)
  Sender: FDA-Public Use
  Company Number: DE-ROCHE-1047167

PATIENT
  Sex: Male

DRUGS (1)
  1. BONIVA [Suspect]
     Indication: OSTEOPOROSIS
     Route: 042

REACTIONS (4)
  - BACK PAIN [None]
  - NAUSEA [None]
  - DIARRHOEA [None]
  - ERECTILE DYSFUNCTION [None]
